FAERS Safety Report 5941297-6 (Version None)
Quarter: 2008Q4

REPORT INFORMATION
  Report Type: 
  Country: None (occurrence: None)
  Receive Date: 20081103
  Receipt Date: 20081103
  Transmission Date: 20090506
  Serious: Yes (Other)
  Sender: FDA-Public Use
  Company Number: None

PATIENT
  Age: 56 Year
  Sex: Female
  Weight: 83.9154 kg

DRUGS (1)
  1. ALLI [Suspect]
     Indication: WEIGHT CONTROL
     Dosage: ONE CAPSULE @MEAL LIMIT 3/DAY PO
     Route: 048
     Dates: start: 20081029, end: 20081029

REACTIONS (3)
  - ASTHENIA [None]
  - HEART RATE IRREGULAR [None]
  - MYALGIA [None]
